FAERS Safety Report 13368545 (Version 1)
Quarter: 2017Q1

REPORT INFORMATION
  Report Type: Spontaneous
  Country: US (occurrence: US)
  Receive Date: 20170324
  Receipt Date: 20170324
  Transmission Date: 20170429
  Serious: Yes (Other)
  Sender: FDA-Public Use
  Company Number: US-ELI_LILLY_AND_COMPANY-US201703006606

PATIENT
  Age: 62 Year
  Sex: Male

DRUGS (2)
  1. CIALIS [Suspect]
     Active Substance: TADALAFIL
     Indication: ERECTILE DYSFUNCTION
     Dosage: 20 MG, UNK
     Dates: start: 2016
  2. CIALIS [Suspect]
     Active Substance: TADALAFIL
     Dosage: 10 MG, UNK

REACTIONS (3)
  - Exercise tolerance decreased [Not Recovered/Not Resolved]
  - Intentional product misuse [Unknown]
  - Coronary artery disease [Unknown]
